FAERS Safety Report 3762178 (Version 4)
Quarter: 2015Q2

REPORT INFORMATION
  Report Type: Spontaneous
  Country: JP (occurrence: JP)
  Receive Date: 20020207
  Receipt Date: 20150417
  Transmission Date: 20150821
  Serious: Yes (Life-Threatening, Hospitalization, Other)
  Sender: FDA-Public Use
  Company Number: PHBS2002JP00787

PATIENT
  Age: 67 Year
  Sex: Female
  Weight: 53 kg

DRUGS (10)
  1. ROHYPNOL [Concomitant]
     Active Substance: FLUNITRAZEPAM
     Dates: start: 20010409
  2. PREDONINE [Concomitant]
     Active Substance: PREDNISOLONE\PREDNISOLONE ACETATE\PREDNISOLONE SODIUM SUCCINATE
     Indication: RADIATION PNEUMONITIS
     Dosage: 12.5 MG/D
     Route: 048
     Dates: start: 20010521
  3. GLIVEC [Suspect]
     Active Substance: IMATINIB MESYLATE
     Indication: CHRONIC MYELOID LEUKAEMIA
     Dosage: 400 MG/DAY
     Route: 048
     Dates: start: 20011207, end: 20011209
  4. HYDRA [Concomitant]
     Active Substance: ISONIAZID
     Dates: start: 19921102, end: 20011102
  5. ADALAT [Concomitant]
     Active Substance: NIFEDIPINE
     Dates: start: 20010409
  6. TERAZOSIN [Concomitant]
     Active Substance: TERAZOSIN\TERAZOSIN HYDROCHLORIDE
     Dates: start: 20010409
  7. INTRON A [Suspect]
     Active Substance: INTERFERON ALFA-2B
     Indication: CHRONIC MYELOID LEUKAEMIA
     Dosage: 300 MIU 2 TO 3/WEEK
     Route: 030
     Dates: start: 199201, end: 20020116
  8. TORASEMIDE [Concomitant]
     Active Substance: TORSEMIDE
     Dates: start: 20010409
  9. FLUITRAN [Concomitant]
     Active Substance: TRICHLORMETHIAZIDE
     Dates: start: 20010409
  10. LASIX [Concomitant]
     Active Substance: FUROSEMIDE
     Dates: start: 20010921

REACTIONS (14)
  - Chronic myeloid leukaemia [None]
  - Red blood cell count decreased [Recovering/Resolving]
  - Blood urea increased [Recovering/Resolving]
  - Cardiomegaly [Recovering/Resolving]
  - Haemoglobin decreased [Recovering/Resolving]
  - Blood creatinine increased [Recovering/Resolving]
  - Fluid retention [Recovering/Resolving]
  - Renal failure [Recovering/Resolving]
  - Disease progression [Recovering/Resolving]
  - Dialysis [None]
  - Malaise [Recovering/Resolving]
  - Pleural effusion [Recovering/Resolving]
  - Platelet count decreased [Recovered/Resolved]
  - Malignant neoplasm progression [None]

NARRATIVE: CASE EVENT DATE: 20011105
